FAERS Safety Report 9500322 (Version 1)
Quarter: 2013Q3

REPORT INFORMATION
  Report Type: Spontaneous
  Country: GB (occurrence: GB)
  Receive Date: 20130905
  Receipt Date: 20130905
  Transmission Date: 20140515
  Serious: Yes (Hospitalization, Disabling)
  Sender: FDA-Public Use
  Company Number: GB-MYLANLABS-2013S1018924

PATIENT
  Age: 84 Year
  Sex: Male
  Weight: 50 kg

DRUGS (13)
  1. ATORVASTATIN [Suspect]
     Indication: HYPERTENSION
     Dates: start: 20130418, end: 20130610
  2. ASPIRIN [Concomitant]
     Indication: PRODUCT USED FOR UNKNOWN INDICATION
     Route: 048
  3. BISOPROLOL [Concomitant]
     Indication: ESSENTIAL HYPERTENSION
     Route: 048
  4. CARBOCISTEINE [Concomitant]
     Indication: PRODUCT USED FOR UNKNOWN INDICATION
     Route: 048
  5. CLOPIDOGREL [Concomitant]
     Indication: PRODUCT USED FOR UNKNOWN INDICATION
     Route: 048
  6. FORTISIP [Concomitant]
     Indication: PRODUCT USED FOR UNKNOWN INDICATION
     Route: 048
  7. GLYCERYL TRINITRATE [Concomitant]
     Indication: CHEST PAIN
     Route: 060
  8. MOVICOL [Concomitant]
     Indication: CONSTIPATION
  9. MUPIROCIN [Concomitant]
     Indication: PRODUCT USED FOR UNKNOWN INDICATION
  10. SALBUTAMOL [Concomitant]
     Indication: CHRONIC OBSTRUCTIVE PULMONARY DISEASE
  11. SENNA [Concomitant]
     Indication: CONSTIPATION
  12. SERETIDE [Concomitant]
     Indication: PRODUCT USED FOR UNKNOWN INDICATION
     Route: 055
  13. SPIRONOLACTONE [Concomitant]
     Indication: PRODUCT USED FOR UNKNOWN INDICATION
     Route: 048

REACTIONS (12)
  - Renal failure acute [Recovering/Resolving]
  - Back pain [Recovering/Resolving]
  - Blister [Unknown]
  - Anaemia [Unknown]
  - Renal failure chronic [Unknown]
  - Chronic obstructive pulmonary disease [Unknown]
  - Circulatory collapse [Recovering/Resolving]
  - Condition aggravated [Unknown]
  - Pruritus [Unknown]
  - Oedema peripheral [Unknown]
  - Rhabdomyolysis [Unknown]
  - Skin erosion [Unknown]
